FAERS Safety Report 18196662 (Version 1)
Quarter: 2020Q3

REPORT INFORMATION
  Report Type: Spontaneous
  Country: US (occurrence: US)
  Receive Date: 20200825
  Receipt Date: 20200825
  Transmission Date: 20201103
  Serious: Yes (Disabling)
  Sender: FDA-Public Use
  Company Number: None

PATIENT
  Age: 62 Year
  Sex: Female
  Weight: 108 kg

DRUGS (15)
  1. LANSOPRAZOLE DR [Concomitant]
     Active Substance: LANSOPRAZOLE
  2. TERBINAFINE. [Concomitant]
     Active Substance: TERBINAFINE
  3. TYLONAL 500 MG [Concomitant]
  4. LANSOPRAZOLE DR [Concomitant]
     Active Substance: LANSOPRAZOLE
  5. MELOXICAM, GENERIC FOR MOBIC [Suspect]
     Active Substance: MELOXICAM
     Indication: INFLAMMATION
     Dosage: ?          QUANTITY:1 TABLET(S);?
     Route: 048
  6. TRAMADOL. [Concomitant]
     Active Substance: TRAMADOL
  7. ESCITALOPRAM OXALATE. [Concomitant]
     Active Substance: ESCITALOPRAM OXALATE
  8. TRIAMTEREINE?HCTZ [Concomitant]
  9. VITAMIN D 250 MCG [Concomitant]
  10. LAMOTRIGINE. [Concomitant]
     Active Substance: LAMOTRIGINE
  11. METOPROLOL SUCCINATE ER [Suspect]
     Active Substance: METOPROLOL SUCCINATE
     Indication: HYPERTENSION
     Dosage: ?          QUANTITY:1 TABLET(S);?
     Route: 048
  12. DULOXETINE  HCL [Concomitant]
     Active Substance: DULOXETINE HYDROCHLORIDE
  13. SUCCINATE ER [Concomitant]
  14. MELOXICAM, GENERIC FOR MOBIC [Suspect]
     Active Substance: MELOXICAM
     Indication: PAIN
     Dosage: ?          QUANTITY:1 TABLET(S);?
     Route: 048
  15. TRAZODONE HYDROCHLORIDE. [Concomitant]
     Active Substance: TRAZODONE HYDROCHLORIDE

REACTIONS (3)
  - Headache [None]
  - Gastrooesophageal reflux disease [None]
  - Hypertension [None]

NARRATIVE: CASE EVENT DATE: 20200819
